FAERS Safety Report 9026443 (Version 1)
Quarter: 2012Q4

REPORT INFORMATION
  Report Type: Spontaneous
  Country: US (occurrence: None)
  Receive Date: 20121206
  Receipt Date: 20121206
  Transmission Date: 20130627
  Serious: Yes (Hospitalization)
  Sender: FDA-Public Use
  Company Number: USEN-8ZSLVH

PATIENT
  Sex: Female

DRUGS (1)
  1. 3M AVAGARD D [Suspect]
     Dosage: topical 100x/shift for 2 months

REACTIONS (7)
  - Erythema [None]
  - Oedema peripheral [None]
  - Haemorrhage [None]
  - Skin fissures [None]
  - Staphylococcal infection [None]
  - Streptococcal infection [None]
  - Beta haemolytic streptococcal infection [None]
